FAERS Safety Report 15122437 (Version 1)
Quarter: 2018Q3

REPORT INFORMATION
  Report Type: Report from Study
  Country: ES (occurrence: ES)
  Receive Date: 20180709
  Receipt Date: 20180709
  Transmission Date: 20181010
  Serious: Yes (Hospitalization)
  Sender: FDA-Public Use
  Company Number: ES-TEVA-2018-ES-922923

PATIENT
  Age: 40 Year
  Sex: Female

DRUGS (2)
  1. YASMINELLE 3 MG / 0,02 MG COMPRIMIDOS RECUBIERTOS CON PELICULA , 21 CO [Concomitant]
     Dosage: 1 CP DIA
     Route: 048
     Dates: start: 20100101
  2. AMOXICILINA (108A): [Suspect]
     Active Substance: AMOXICILLIN
     Route: 048
     Dates: start: 20170925, end: 20170928

REACTIONS (1)
  - Hepatitis acute [Recovered/Resolved]

NARRATIVE: CASE EVENT DATE: 20170928
